FAERS Safety Report 9720486 (Version 3)
Quarter: 2014Q1

REPORT INFORMATION
  Report Type: Report from Study
  Country: US (occurrence: US)
  Receive Date: 20131129
  Receipt Date: 20140122
  Transmission Date: 20141002
  Serious: Yes (Hospitalization)
  Sender: FDA-Public Use
  Company Number: US-JNJFOC-20131114939

PATIENT
  Age: 18 Year
  Sex: Female
  Weight: 52.6 kg

DRUGS (6)
  1. REMICADE [Suspect]
     Indication: INFLAMMATORY BOWEL DISEASE
     Route: 042
     Dates: start: 201001
  2. 5-ASA [Concomitant]
     Route: 048
  3. PROBIOTIC [Concomitant]
     Route: 048
  4. MULTIVITAMINS [Concomitant]
     Route: 065
  5. OMEGA 3 FATTY ACIDS [Concomitant]
     Route: 065
  6. DEPO PROVERA [Concomitant]
     Route: 065

REACTIONS (1)
  - Gastroenteritis eosinophilic [Recovered/Resolved]
